FAERS Safety Report 8141027-6 (Version None)
Quarter: 2012Q1

REPORT INFORMATION
  Report Type: 
  Country: None (occurrence: None)
  Receive Date: 20120216
  Receipt Date: 20120202
  Transmission Date: 20120608
  Serious: Yes (Other)
  Sender: FDA-Public Use
  Company Number: SE-UCBSA-051067

PATIENT
  Age: 44 Year
  Sex: Male

DRUGS (4)
  1. CIMZIA [Suspect]
     Indication: RHEUMATOID ARTHRITIS
     Dosage: 200 MG
     Route: 058
     Dates: start: 20111007, end: 20111130
  2. NSAID-COX1 [Concomitant]
     Dates: start: 20111007
  3. REMICADE [Concomitant]
     Dosage: 300 MG
     Dates: start: 20090818, end: 20111007
  4. PREDNISOLONE [Concomitant]
     Dosage: 5 MG
     Dates: start: 20111007

REACTIONS (5)
  - RASH ERYTHEMATOUS [None]
  - PRURITUS [None]
  - ALOPECIA [None]
  - PHARYNGEAL OEDEMA [None]
  - DYSPHAGIA [None]
